FAERS Safety Report 18304914 (Version 1)
Quarter: 2020Q3

REPORT INFORMATION
  Report Type: Spontaneous
  Country: US (occurrence: US)
  Receive Date: 20200923
  Receipt Date: 20200923
  Transmission Date: 20201103
  Serious: Yes (Other)
  Sender: FDA-Public Use
  Company Number: None

PATIENT
  Age: 39 Year
  Sex: Male
  Weight: 84 kg

DRUGS (1)
  1. HALOPERIDOL (HALOPERIDOL 5MG TAB, UD) [Suspect]
     Active Substance: HALOPERIDOL
     Indication: AGITATION
     Route: 048
     Dates: start: 20200731, end: 20200731

REACTIONS (1)
  - Urinary retention [None]

NARRATIVE: CASE EVENT DATE: 20200801
